FAERS Safety Report 16445791 (Version 1)
Quarter: 2019Q2

REPORT INFORMATION
  Report Type: Spontaneous
  Country: ES (occurrence: ES)
  Receive Date: 20190618
  Receipt Date: 20190618
  Transmission Date: 20190711
  Serious: Yes (Hospitalization)
  Sender: FDA-Public Use
  Company Number: ES-MYLANLABS-2019M1055997

PATIENT
  Age: 86 Year
  Sex: Female

DRUGS (6)
  1. DISTRANEURINE                      /00027501/ [Concomitant]
     Active Substance: CLOMETHIAZOLE
     Dosage: UNK
  2. HIBOR [Concomitant]
     Dosage: UNK
  3. KEPPRA [Concomitant]
     Active Substance: LEVETIRACETAM
     Dosage: UNK
  4. LEVETIRACETAM. [Suspect]
     Active Substance: LEVETIRACETAM
     Indication: SUBARACHNOID HAEMORRHAGE
     Dosage: 500 MILLIGRAM, BID
     Route: 048
     Dates: start: 20111229
  5. DILUTOL 5 MG COMPRIMIDOS [Suspect]
     Active Substance: TORSEMIDE
     Indication: PRODUCT USED FOR UNKNOWN INDICATION
     Dosage: 5 MILLIGRAM, QD(1-0-0)
     Route: 048
     Dates: start: 20180918
  6. CAFINITRINA                        /07893501/ [Concomitant]
     Active Substance: CAFFEINE CITRATE\NITROGLYCERIN
     Dosage: UNK

REACTIONS (2)
  - Asthenia [Unknown]
  - Hyponatraemia [Unknown]

NARRATIVE: CASE EVENT DATE: 20181222
